FAERS Safety Report 25186113 (Version 4)
Quarter: 2025Q4

REPORT INFORMATION
  Report Type: Spontaneous
  Country: EU (occurrence: EU)
  Receive Date: 20250410
  Receipt Date: 20251030
  Transmission Date: 20260117
  Serious: Yes (Hospitalization, Other)
  Sender: BIOMARIN
  Company Number: EU-BIOMARINAP-DE-2025-163219

PATIENT
  Age: 26 Year
  Sex: Female
  Weight: 25.7 kg

DRUGS (1)
  1. NAGLAZYME [Suspect]
     Active Substance: GALSULFASE
     Indication: Mucopolysaccharidosis VI
     Dosage: 25 MILLIGRAM, QW

REACTIONS (4)
  - Intraocular pressure increased [Recovered/Resolved]
  - Retinal tear [Unknown]
  - Headache [Recovering/Resolving]
  - Lacrimation increased [Recovering/Resolving]
